FAERS Safety Report 7960485 (Version 4)
Quarter: 2013Q3

REPORT INFORMATION
  Report Type: Spontaneous
  Country: SE (occurrence: SE)
  Receive Date: 20110525
  Receipt Date: 20130708
  Transmission Date: 20140515
  Serious: Yes (Hospitalization, Other)
  Sender: FDA-Public Use
  Company Number: SE-US-EMD SERONO, INC.-7060881

PATIENT
  Age: 44 Year
  Sex: Female

DRUGS (8)
  1. REBIF [Suspect]
     Indication: MULTIPLE SCLEROSIS
     Route: 058
     Dates: start: 2002, end: 2003
  2. REBIF [Suspect]
     Route: 058
     Dates: start: 2007, end: 2009
  3. REBIF [Suspect]
     Route: 058
     Dates: start: 201010, end: 20110906
  4. ALVEDAN [Concomitant]
     Indication: PRODUCT USED FOR UNKNOWN INDICATION
  5. KENTERA [Concomitant]
     Indication: PRODUCT USED FOR UNKNOWN INDICATION
  6. CITODON [Concomitant]
     Indication: PRODUCT USED FOR UNKNOWN INDICATION
  7. IMOVANE [Concomitant]
     Indication: PRODUCT USED FOR UNKNOWN INDICATION
  8. OXASCAND [Concomitant]
     Indication: PRODUCT USED FOR UNKNOWN INDICATION

REACTIONS (3)
  - Deep vein thrombosis [Unknown]
  - Pulmonary embolism [Unknown]
  - Protein S deficiency [Unknown]
